FAERS Safety Report 13617847 (Version 1)
Quarter: 2017Q2

REPORT INFORMATION
  Report Type: Spontaneous
  Country: US (occurrence: US)
  Receive Date: 20170606
  Receipt Date: 20170606
  Transmission Date: 20170830
  Serious: No
  Sender: FDA-Public Use
  Company Number: US-LEXICON PHARMACEUTICALS, INC-17-1606-00192

PATIENT
  Age: 75 Year
  Sex: Male

DRUGS (15)
  1. TELOTRISTAT ETHYL [Suspect]
     Active Substance: TELOTRISTAT ETHYL
     Indication: CARCINOID SYNDROME
     Route: 048
     Dates: start: 20170420, end: 20170426
  2. METOPROLOL. [Concomitant]
     Active Substance: METOPROLOL
  3. FLOMAX [Concomitant]
     Active Substance: TAMSULOSIN HYDROCHLORIDE
  4. ELIQUIS [Concomitant]
     Active Substance: APIXABAN
  5. VITAMIN B12 [Concomitant]
     Active Substance: CYANOCOBALAMIN
  6. KLOR-CON [Concomitant]
     Active Substance: POTASSIUM CHLORIDE
  7. LYRICA [Concomitant]
     Active Substance: PREGABALIN
  8. ALLOPURINOL. [Concomitant]
     Active Substance: ALLOPURINOL
  9. AFINITOR [Concomitant]
     Active Substance: EVEROLIMUS
  10. VITAMIN D [Concomitant]
     Active Substance: CHOLECALCIFEROL
  11. PARICALCITOL. [Concomitant]
     Active Substance: PARICALCITOL
  12. SOMATULINE DEPOT [Concomitant]
     Active Substance: LANREOTIDE ACETATE
  13. SLO-NIACIN [Concomitant]
     Active Substance: DIETARY SUPPLEMENT
  14. SODIUM BICARBONATE. [Concomitant]
     Active Substance: SODIUM BICARBONATE
  15. MAGNESIUM OXIDE. [Concomitant]
     Active Substance: MAGNESIUM OXIDE

REACTIONS (3)
  - Diarrhoea [Unknown]
  - Drug interaction [Unknown]
  - Hepatic enzyme increased [Unknown]

NARRATIVE: CASE EVENT DATE: 201704
